FAERS Safety Report 9114764 (Version 1)
Quarter: 2013Q1

REPORT INFORMATION
  Report Type: Spontaneous
  Country: ES (occurrence: None)
  Receive Date: 20130128
  Receipt Date: 20130128
  Transmission Date: 20140127
  Serious: Yes (Hospitalization)
  Sender: FDA-Public Use
  Company Number: ES-INDICUS PHARMA-000050

PATIENT
  Age: 54 Year
  Sex: Male

DRUGS (4)
  1. METFORMIN HYDROCHLORIDE [Suspect]
     Indication: DIABETES MELLITUS
     Dosage: 850.00-MG-2.00/ TIMES PER-1.0DAYS
  2. INSULIN LANTUS [Suspect]
     Indication: DIABETES MELLITUS
  3. AMLODIPINE (AMLODIPINE) [Concomitant]
  4. VALSARTAN(VALSARTAN) [Concomitant]

REACTIONS (13)
  - Lactic acidosis [None]
  - Blindness [None]
  - Hypoglycaemia [None]
  - Renal failure acute [None]
  - Hyperventilation [None]
  - Blood pressure decreased [None]
  - Kussmaul respiration [None]
  - Heart rate increased [None]
  - Confusional state [None]
  - Diabetic retinopathy [None]
  - Vitreous haemorrhage [None]
  - Haemodialysis [None]
  - Blood glucose increased [None]
